FAERS Safety Report 6663654-5 (Version None)
Quarter: 2010Q2

REPORT INFORMATION
  Report Type: 
  Country: None (occurrence: None)
  Receive Date: 20100401
  Receipt Date: 20100329
  Transmission Date: 20101027
  Serious: Yes (Hospitalization, Other)
  Sender: FDA-Public Use
  Company Number: JP-ROCHE-692998

PATIENT
  Age: 6 Year
  Sex: Male

DRUGS (4)
  1. CELLCEPT [Suspect]
     Route: 048
  2. PREDNISOLONE [Concomitant]
  3. BASILIXIMAB [Concomitant]
  4. TACROLIMUS [Concomitant]

REACTIONS (5)
  - CAMPYLOBACTER INTESTINAL INFECTION [None]
  - DRUG LEVEL INCREASED [None]
  - PNEUMOCOCCAL SEPSIS [None]
  - PNEUMONIA INFLUENZAL [None]
  - RENAL IMPAIRMENT [None]
